FAERS Safety Report 10182365 (Version 1)
Quarter: 2014Q2

REPORT INFORMATION
  Report Type: Spontaneous
  Country: US (occurrence: None)
  Receive Date: 20140516
  Receipt Date: 20140516
  Transmission Date: 20141212
  Serious: Yes (Other)
  Sender: FDA-Public Use
  Company Number: 2336545

PATIENT
  Age: 53 Year
  Sex: Female

DRUGS (8)
  1. VINCRISTINE SULFATE [Suspect]
     Indication: T-CELL LYMPHOMA
     Dosage: CYCLICAL
  2. METHOTREXATE [Suspect]
     Indication: T-CELL LYMPHOMA
  3. CYCLOSPORINE [Suspect]
     Indication: T-CELL LYMPHOMA
     Dosage: CYCLICAL
  4. DOXORUBICIN [Suspect]
     Indication: T-CELL LYMPHOMA
  5. DEXAMETHASONE [Suspect]
     Indication: T-CELL LYMPHOMA
     Dosage: CYCLICAL
  6. MERCAPTOPURINE [Suspect]
     Indication: T-CELL LYMPHOMA
  7. PREDNISONE [Suspect]
     Indication: T-CELL LYMPHOMA
  8. ONCOVIN [Suspect]
     Indication: T-CELL LYMPHOMA

REACTIONS (3)
  - Epstein-Barr viraemia [None]
  - Cytomegalovirus viraemia [None]
  - Epstein-Barr virus associated lymphoma [None]
